FAERS Safety Report 16338202 (Version 2)
Quarter: 2020Q4

REPORT INFORMATION
  Report Type: Spontaneous
  Country: DK (occurrence: DK)
  Receive Date: 20190521
  Receipt Date: 20201223
  Transmission Date: 20210113
  Serious: Yes (Hospitalization, Disabling)
  Sender: FDA-Public Use
  Company Number: DK-JNJFOC-20190512511

PATIENT
  Age: 43 Year
  Sex: Male
  Weight: 74 kg

DRUGS (4)
  1. REMICADE [Suspect]
     Active Substance: INFLIXIMAB
     Indication: COLITIS ULCERATIVE
     Route: 042
     Dates: start: 20181116, end: 20190208
  2. SOLU-MEDROL [Concomitant]
     Active Substance: METHYLPREDNISOLONE SODIUM SUCCINATE
     Indication: COLITIS ULCERATIVE
     Dosage: STRENGHT: UNKNOWN.?DOSAGE: UNKNOWN.
     Dates: start: 201811, end: 201911
  3. ASACOL [Suspect]
     Active Substance: MESALAMINE
     Indication: COLITIS ULCERATIVE
     Route: 048
     Dates: start: 201509
  4. PREDNISOLONE. [Concomitant]
     Active Substance: PREDNISOLONE
     Route: 065
     Dates: start: 20181108, end: 20190125

REACTIONS (10)
  - Respiratory failure [Unknown]
  - Dyspnoea [Recovering/Resolving]
  - Arthralgia [Unknown]
  - Endotracheal intubation [Recovered/Resolved]
  - Organising pneumonia [Not Recovered/Not Resolved]
  - C-reactive protein increased [Recovering/Resolving]
  - Pyrexia [Unknown]
  - Cough [Unknown]
  - Pulmonary fibrosis [Not Recovered/Not Resolved]
  - Myalgia [Unknown]

NARRATIVE: CASE EVENT DATE: 201902
